FAERS Safety Report 5836809-7 (Version None)
Quarter: 2008Q3

REPORT INFORMATION
  Report Type: 
  Country: None (occurrence: None)
  Receive Date: 20080807
  Receipt Date: 20080807
  Transmission Date: 20090109
  Serious: Yes (Other)
  Sender: FDA-Public Use
  Company Number: A0741479A

PATIENT
  Age: 39 Year
  Sex: Female

DRUGS (1)
  1. NICORETTE (MINT) [Suspect]
     Indication: SMOKING CESSATION THERAPY
     Dosage: 2MG UNKNOWN
     Route: 002
     Dates: start: 20080808

REACTIONS (1)
  - CYANOSIS [None]
